FAERS Safety Report 8910690 (Version 1)
Quarter: 2012Q4

REPORT INFORMATION
  Report Type: Spontaneous
  Country: BR (occurrence: None)
  Receive Date: 20121113
  Receipt Date: 20121113
  Transmission Date: 20130627
  Serious: Yes (Other)
  Sender: FDA-Public Use
  Company Number: ENT 2012-0153

PATIENT
  Age: 77 Year
  Sex: Male

DRUGS (2)
  1. COMTAN [Suspect]
     Route: 048
  2. PROLOPA [Suspect]

REACTIONS (6)
  - Parkinson^s disease [None]
  - Diabetes mellitus [None]
  - Hypertension [None]
  - Thyroid disorder [None]
  - Blood cholesterol abnormal [None]
  - Incontinence [None]
